FAERS Safety Report 21447895 (Version 1)
Quarter: 2022Q4

REPORT INFORMATION
  Report Type: Spontaneous
  Country: DE (occurrence: DE)
  Receive Date: 20221012
  Receipt Date: 20221012
  Transmission Date: 20230113
  Serious: Yes (Hospitalization)
  Sender: FDA-Public Use
  Company Number: DE-ADRED-07549-01

PATIENT
  Age: 73 Year
  Sex: Male

DRUGS (18)
  1. METOPROLOL [Suspect]
     Active Substance: METOPROLOL
     Indication: Product used for unknown indication
     Dosage: 95 MILLIGRAM DAILY; 1-0-1-0, UNIT DOSE : 47.5  MG, FREQUENCY ; 2 , FREQUENCY TIME : 1 DAYS
     Route: 065
  2. TORSEMIDE [Suspect]
     Active Substance: TORSEMIDE
     Indication: Product used for unknown indication
     Dosage: 10 MG, 2-1-0-0
     Route: 065
  3. APIXABAN [Suspect]
     Active Substance: APIXABAN
     Indication: Product used for unknown indication
     Dosage: 10 MILLIGRAM DAILY; 1-0-1-0,UNIT DOSE : 5 MG, FREQUENCY ; 2, FREQUENCY TIME : 1 DAYS,
     Route: 065
  4. XIPAMIDE [Suspect]
     Active Substance: XIPAMIDE
     Indication: Product used for unknown indication
     Dosage: 10 MILLIGRAM DAILY; 1-0-0-0, UNIT DOSE : 10 MG, FREQUENCY ; 1 , FREQUENCY TIME : 1 DAYS,
     Route: 065
  5. AMIODARONE [Suspect]
     Active Substance: AMIODARONE
     Indication: Product used for unknown indication
     Dosage: 200 MILLIGRAM DAILY; 1-0-0-0, UNIT DOSE : 200 MG, FREQUENCY ; 1 , FREQUENCY TIME : 1 DAYS,
     Route: 065
  6. SITAGLIPTIN [Concomitant]
     Active Substance: SITAGLIPTIN
     Indication: Product used for unknown indication
     Dosage: 50 MILLIGRAM DAILY; 1-0-0-0,UNIT DOSE : 50 MG, FREQUENCY ; 1 , FREQUENCY TIME : 1 DAYS,
  7. CANDESARTAN [Concomitant]
     Active Substance: CANDESARTAN
     Indication: Product used for unknown indication
     Dosage: 1 DOSAGE FORMS DAILY; 16 MG, 0.5-0-0.5-0, UNIT DOSE : 0.5  DOSAGE FORMS, FREQUENCY ; 2 , FREQUENCY T
  8. PANTOPRAZOLE SODIUM [Concomitant]
     Active Substance: PANTOPRAZOLE SODIUM
     Indication: Product used for unknown indication
     Dosage: 40 MILLIGRAM DAILY; 1-0-0-0, UNIT DOSE : 40 MG, FREQUENCY ; 1 , FREQUENCY TIME : 1 DAYS,
  9. MIRTAZAPINE [Concomitant]
     Active Substance: MIRTAZAPINE
     Indication: Product used for unknown indication
     Dosage: 15 MILLIGRAM DAILY; 0-0-1-0, UNIT DOSE : 15 MG, FREQUENCY ; 1 , FREQUENCY TIME : 1 DAYS,
  10. MESALAMINE [Concomitant]
     Active Substance: MESALAMINE
     Indication: Product used for unknown indication
     Dosage: 1 GRAM DAILY; 0-0-1-0, UNIT DOSE : 1 GRAM , FREQUENCY ; 1 , FREQUENCY TIME : 1 DAYS,
  11. ATORVASTATIN [Concomitant]
     Active Substance: ATORVASTATIN
     Indication: Product used for unknown indication
     Dosage: 20 MILLIGRAM DAILY; 0-0-1-0, UNIT DOSE : 20 MG, FREQUENCY ; 1 , FREQUENCY TIME : 1 DAYS,
  12. Cyanocobalamin (Vitamin B12) [Concomitant]
     Indication: Product used for unknown indication
     Dosage: SOLUTION FOR INJECTION/INFUSION, UNIT DOSE : 1000 MICROGRAM, FREQUENCY ; 1 , FREQUENCY TIME : 1 MONT
  13. ACETAMINOPHEN [Concomitant]
     Active Substance: ACETAMINOPHEN
     Indication: Product used for unknown indication
     Dosage: 500 MG, AS NEEDED,
  14. POLYETHYLENE GLYCOL 3350\POTASSIUM CHLORIDE\SODIUM BICARBONATE\SODIUM [Concomitant]
     Active Substance: POLYETHYLENE GLYCOL 3350\POTASSIUM CHLORIDE\SODIUM BICARBONATE\SODIUM CHLORIDE
     Indication: Product used for unknown indication
     Dosage: 2 DOSAGE FORMS DAILY; 1-0-1-0, UNIT DOSE : 1 DOSAGE FORMS, FREQUENCY ; 2 , FREQUENCY TIME : 1 DAYS,
  15. TAMSULOSIN [Concomitant]
     Active Substance: TAMSULOSIN
     Indication: Product used for unknown indication
     Dosage: .4 MILLIGRAM DAILY; 1-0-0-0, UNIT DOSE : 0.4 MG, FREQUENCY ; 1 , FREQUENCY TIME : 1 DAYS
  16. ALLOPURINOL [Concomitant]
     Active Substance: ALLOPURINOL
     Indication: Product used for unknown indication
     Dosage: .5 DOSAGE FORMS DAILY; 300 MG, 0.5-0-0-0, UNIT DOSE : 0.5 DOSAGE FORMS, FREQUENCY ; 1 , FREQUENCY TI
  17. Eisen(II)sulfat [Concomitant]
     Indication: Product used for unknown indication
     Dosage: 100 MILLIGRAM DAILY; 1-0-0-0,UNIT DOSE : 100 MG, FREQUENCY ; 1 , FREQUENCY TIME : 1 DAYS,
  18. METFORMIN [Concomitant]
     Active Substance: METFORMIN HYDROCHLORIDE
     Indication: Product used for unknown indication
     Dosage: 1000 MILLIGRAM DAILY; 1-0-1-0, UNIT DOSE : 500 MG, FREQUENCY ; 2 , FREQUENCY TIME : 1 DAYS,

REACTIONS (3)
  - Bradycardia [Unknown]
  - Oedema peripheral [Unknown]
  - Musculoskeletal pain [Unknown]
